FAERS Safety Report 4311020-X (Version None)
Quarter: 2004Q1

REPORT INFORMATION
  Report Type: 
  Country: None (occurrence: None)
  Receive Date: 20040302
  Receipt Date: 20040302
  Transmission Date: 20041129
  Serious: Yes (Life-Threatening)
  Sender: FDA-Public Use
  Company Number: None

PATIENT
  Age: 41 Year
  Sex: Male

DRUGS (1)
  1. PEG-RHUMGDF [Suspect]
     Dates: start: 19980410, end: 19980803

REACTIONS (3)
  - ANTIBODY TEST POSITIVE [None]
  - MANTLE CELL LYMPHOMA [None]
  - PLATELET COUNT DECREASED [None]
